FAERS Safety Report 5638564-2 (Version None)
Quarter: 2008Q1

REPORT INFORMATION
  Report Type: 
  Country: None (occurrence: None)
  Receive Date: 20080226
  Receipt Date: 20070724
  Transmission Date: 20080703
  Serious: No
  Sender: FDA-Public Use
  Company Number: A0649078A

PATIENT
  Age: 42 Year
  Sex: Female

DRUGS (8)
  1. IMITREX [Suspect]
     Indication: MIGRAINE
     Dosage: 6MG AS REQUIRED
     Route: 058
     Dates: start: 20070427
  2. KADIAN [Concomitant]
  3. UNKNOWN MEDICATION [Concomitant]
  4. TIZANIDINE HCL [Concomitant]
  5. GUAIFENESIN [Concomitant]
  6. WELLBUTRIN [Concomitant]
  7. AUGMENTIN '250' [Concomitant]
  8. NASONEX [Concomitant]

REACTIONS (2)
  - DRUG INEFFECTIVE [None]
  - PHARMACEUTICAL PRODUCT COMPLAINT [None]
